FAERS Safety Report 4576032-X (Version None)
Quarter: 2005Q1

REPORT INFORMATION
  Report Type: 
  Country: None (occurrence: None)
  Receive Date: 20050209
  Receipt Date: 20050203
  Transmission Date: 20050727
  Serious: Yes (Life-Threatening, Hospitalization, Disabling, Other)
  Sender: FDA-Public Use
  Company Number: PHBS2005HR01774

PATIENT
  Age: 41 Year
  Sex: Male

DRUGS (5)
  1. CLOZARIL [Suspect]
     Indication: SCHIZOPHRENIA
     Dosage: 200 MG/D
     Route: 048
     Dates: start: 20041206, end: 20041213
  2. CLOZARIL [Suspect]
     Dosage: 100 MG/D
     Route: 048
     Dates: start: 20041214
  3. HALOPERIDOL [Concomitant]
     Route: 065
     Dates: start: 20020101, end: 20041211
  4. CLOPIXOL [Concomitant]
     Route: 065
  5. DIAZEPAM [Concomitant]
     Route: 065

REACTIONS (13)
  - ANTINUCLEAR ANTIBODY POSITIVE [None]
  - COMA [None]
  - DIARRHOEA [None]
  - DYSPHAGIA [None]
  - LIFE SUPPORT [None]
  - LUPUS-LIKE SYNDROME [None]
  - PSEUDOMONAS INFECTION [None]
  - PYREXIA [None]
  - RED BLOOD CELL SEDIMENTATION RATE INCREASED [None]
  - RESPIRATORY DEPRESSION [None]
  - TRACHEOSTOMY [None]
  - VASCULITIS [None]
  - WHITE BLOOD CELL COUNT INCREASED [None]
